FAERS Safety Report 9325616 (Version 2)
Quarter: 2013Q2

REPORT INFORMATION
  Report Type: Spontaneous
  Country: CN (occurrence: CN)
  Receive Date: 20130604
  Receipt Date: 20130608
  Transmission Date: 20140414
  Serious: Yes (Death, Life-Threatening, Other)
  Sender: FDA-Public Use
  Company Number: CN-009507513-1305CHN017690

PATIENT
  Age: 68 Year
  Sex: Male

DRUGS (7)
  1. ZOCOR [Suspect]
     Indication: HYPERLIPIDAEMIA
     Dosage: 40 MG, QD, 1 TABLET AFTER DINNER
     Route: 048
     Dates: start: 20130419, end: 20130518
  2. LIPITOR [Concomitant]
     Dosage: 20 MG, QD
     Route: 048
     Dates: start: 20130411, end: 20130418
  3. CORDARONE [Concomitant]
     Dosage: UNK
     Route: 048
     Dates: start: 20130509, end: 20130519
  4. ALLOPURINOL [Concomitant]
     Dosage: UNK
     Route: 048
     Dates: start: 20130411, end: 20130418
  5. BETALOC [Concomitant]
     Dosage: 12.5 MG, QD
     Route: 048
     Dates: start: 20130409
  6. FUROSEMIDE [Concomitant]
     Dosage: UNK
     Route: 048
     Dates: start: 20130412
  7. DIGOXIN [Concomitant]
     Dosage: UNK
     Dates: start: 20130412

REACTIONS (4)
  - Rhabdomyolysis [Fatal]
  - Oliguria [Unknown]
  - Hypotension [Unknown]
  - Myositis [Unknown]
